FAERS Safety Report 9056606 (Version 2)
Quarter: 2013Q2

REPORT INFORMATION
  Report Type: Spontaneous
  Country: GB (occurrence: GB)
  Receive Date: 20130204
  Receipt Date: 20130530
  Transmission Date: 20140414
  Serious: Yes (Other)
  Sender: FDA-Public Use
  Company Number: GB-MYLANLABS-2013S1001848

PATIENT
  Sex: Male

DRUGS (4)
  1. BISOPROLOL [Suspect]
     Indication: HEART RATE IRREGULAR
  2. LOSARTAN [Suspect]
     Indication: AORTIC ANEURYSM
  3. ACETYLSALICYLIC ACID [Suspect]
     Indication: PRODUCT USED FOR UNKNOWN INDICATION
  4. BENDROFLUMETHIAZIDE [Suspect]
     Indication: PRODUCT USED FOR UNKNOWN INDICATION

REACTIONS (4)
  - Aneurysm [Unknown]
  - Drug interaction [Unknown]
  - Cardiac failure [Unknown]
  - Transient ischaemic attack [Unknown]
